FAERS Safety Report 21797838 (Version 2)
Quarter: 2023Q1

REPORT INFORMATION
  Report Type: Report from Study
  Country: US (occurrence: US)
  Receive Date: 20221230
  Receipt Date: 20230129
  Transmission Date: 20230417
  Serious: Yes (Other)
  Sender: FDA-Public Use
  Company Number: US-ABBVIE-4252921

PATIENT
  Age: 30 Year
  Sex: Male

DRUGS (1)
  1. HUMIRA [Suspect]
     Active Substance: ADALIMUMAB
     Indication: Colitis ulcerative
     Route: 058
     Dates: start: 20191106

REACTIONS (7)
  - Acne [Unknown]
  - Anal abscess [Recovering/Resolving]
  - Nasopharyngitis [Recovering/Resolving]
  - Haemorrhage [Unknown]
  - Erythema [Unknown]
  - Skin irritation [Unknown]
  - Skin haemorrhage [Unknown]

NARRATIVE: CASE EVENT DATE: 20221224
